FAERS Safety Report 16340489 (Version 1)
Quarter: 2019Q2

REPORT INFORMATION
  Report Type: Spontaneous
  Country: US (occurrence: US)
  Receive Date: 20190522
  Receipt Date: 20190522
  Transmission Date: 20190711
  Serious: No
  Sender: FDA-Public Use
  Company Number: US-CIPLA LTD.-2019US01579

PATIENT

DRUGS (2)
  1. TESTOSTERONE. [Suspect]
     Active Substance: TESTOSTERONE
     Indication: BLOOD TESTOSTERONE DECREASED
     Dosage: UNK
     Route: 065
     Dates: start: 2017
  2. TESTOSTERONE. [Suspect]
     Active Substance: TESTOSTERONE
     Dosage: 1.5 MILLILITER, PER WEEK, 200 MG/ML IN 1 ML VIAL, 1 AND HALF VIAL A WEEK
     Route: 065

REACTIONS (3)
  - Multiple use of single-use product [Unknown]
  - Product deposit [Unknown]
  - Product gel formation [Unknown]
